FAERS Safety Report 10473045 (Version 2)
Quarter: 2014Q4

REPORT INFORMATION
  Report Type: Spontaneous
  Country: US (occurrence: US)
  Receive Date: 20140924
  Receipt Date: 20141222
  Transmission Date: 20150528
  Serious: No
  Sender: FDA-Public Use
  Company Number: US-SA-2014SA082725

PATIENT
  Age: 57 Year
  Sex: Female
  Weight: 81.64 kg

DRUGS (1)
  1. AUBAGIO [Suspect]
     Active Substance: TERIFLUNOMIDE
     Indication: MULTIPLE SCLEROSIS
     Route: 048
     Dates: start: 201404

REACTIONS (3)
  - Dysarthria [Unknown]
  - Drug dose omission [Unknown]
  - Thinking abnormal [Unknown]
